FAERS Safety Report 13766058 (Version 1)
Quarter: 2017Q3

REPORT INFORMATION
  Report Type: Spontaneous
  Country: US (occurrence: US)
  Receive Date: 20170718
  Receipt Date: 20170718
  Transmission Date: 20171127
  Serious: No
  Sender: FDA-Public Use
  Company Number: US-ENDO PHARMACEUTICALS INC-2016-007425

PATIENT
  Age: 68 Year
  Sex: Male
  Weight: 79.37 kg

DRUGS (1)
  1. TRIAMCINOLONE ACETONIDE CREAM [Suspect]
     Active Substance: TRIAMCINOLONE ACETONIDE
     Indication: PRURITUS
     Dosage: UNK UNKNOWN, PRN
     Route: 065
     Dates: start: 2014

REACTIONS (3)
  - Product container issue [Unknown]
  - Expired product administered [Unknown]
  - Product leakage [Unknown]

NARRATIVE: CASE EVENT DATE: 201612
